FAERS Safety Report 21821278 (Version 1)
Quarter: 2023Q1

REPORT INFORMATION
  Report Type: Spontaneous
  Country: IT (occurrence: IT)
  Receive Date: 20230105
  Receipt Date: 20230105
  Transmission Date: 20230417
  Serious: Yes (Hospitalization)
  Sender: FDA-Public Use
  Company Number: None

PATIENT
  Age: 50 Year
  Sex: Male

DRUGS (1)
  1. FENTANYL [Suspect]
     Active Substance: FENTANYL
     Indication: Pain
     Route: 062
     Dates: start: 20221207, end: 20221207

REACTIONS (1)
  - Colour blindness [Recovering/Resolving]

NARRATIVE: CASE EVENT DATE: 20221207
